FAERS Safety Report 7114055-7 (Version None)
Quarter: 2010Q4

REPORT INFORMATION
  Report Type: 
  Country: None (occurrence: None)
  Receive Date: 20101119
  Receipt Date: 20101110
  Transmission Date: 20110411
  Serious: Yes (Hospitalization)
  Sender: FDA-Public Use
  Company Number: NL-GENZYME-CLOF-1001315

PATIENT
  Sex: Male
  Weight: 103 kg

DRUGS (8)
  1. EVOLTRA [Suspect]
     Indication: ACUTE LYMPHOCYTIC LEUKAEMIA
     Dosage: UNK
     Route: 042
  2. PREDNISOLONE [Suspect]
     Indication: PREMEDICATION
     Dosage: 90 MG, BID
     Route: 048
     Dates: start: 20100930, end: 20101006
  3. VINCRISTINE [Suspect]
     Indication: ACUTE LYMPHOCYTIC LEUKAEMIA
     Dosage: 1 MG, NA
     Route: 042
     Dates: start: 20100930, end: 20101028
  4. MERCAPTOPURINE [Suspect]
     Indication: ACUTE LYMPHOCYTIC LEUKAEMIA
     Dosage: 100 MG, QD
     Route: 048
     Dates: start: 20100930, end: 20101020
  5. METHOTREXATE [Suspect]
     Indication: ACUTE LYMPHOCYTIC LEUKAEMIA
     Dosage: 11000 MG, NA
     Route: 042
     Dates: start: 20100930, end: 20101022
  6. VALACICLOVIR [Concomitant]
     Indication: PROPHYLAXIS
     Dosage: 500 MG, UNK
     Route: 048
     Dates: start: 20101028, end: 20101101
  7. ESOMEPRAZOLE [Concomitant]
     Dosage: 40 MG, UNK
     Route: 048
     Dates: start: 20101028, end: 20101101
  8. FOLIUMZUUR [Concomitant]
     Indication: PROPHYLAXIS
     Dosage: 15 MG, UNK
     Route: 048
     Dates: start: 20101030, end: 20101031

REACTIONS (3)
  - DRUG TOXICITY [None]
  - INFUSION SITE EXTRAVASATION [None]
  - PULMONARY EMBOLISM [None]
